FAERS Safety Report 4361465-7 (Version None)
Quarter: 2004Q2

REPORT INFORMATION
  Report Type: 
  Country: None (occurrence: None)
  Receive Date: 20040521
  Receipt Date: 20030730
  Transmission Date: 20050107
  Serious: No
  Sender: FDA-Public Use
  Company Number: US-GLAXOSMITHKLINE-A0419717A

PATIENT
  Age: 45 Year
  Sex: Female

DRUGS (2)
  1. ZYBAN [Suspect]
     Dosage: 150MG SINGLE DOSE
     Route: 048
  2. PREMARIN [Concomitant]

REACTIONS (2)
  - DYSPNOEA [None]
  - PARAESTHESIA [None]
